FAERS Safety Report 6781730-3 (Version None)
Quarter: 2010Q2

REPORT INFORMATION
  Report Type: 
  Country: None (occurrence: None)
  Receive Date: 20100618
  Receipt Date: 20100618
  Transmission Date: 20101027
  Serious: Yes (Hospitalization)
  Sender: FDA-Public Use
  Company Number: None

PATIENT
  Sex: Female
  Weight: 70.9 kg

DRUGS (2)
  1. CISPLATIN [Suspect]
     Dosage: 85 MG
     Dates: start: 20100302
  2. TAXOL [Suspect]
     Dosage: 300 MG
     Dates: start: 20100302

REACTIONS (3)
  - HAEMATOCRIT DECREASED [None]
  - THROMBOSIS [None]
  - VAGINAL HAEMORRHAGE [None]
